FAERS Safety Report 8370656-X (Version None)
Quarter: 2012Q2

REPORT INFORMATION
  Report Type: 
  Country: None (occurrence: None)
  Receive Date: 20120518
  Receipt Date: 20120510
  Transmission Date: 20120825
  Serious: Yes (Other)
  Sender: FDA-Public Use
  Company Number: US-US-EMD SERONO, INC.-7132743

PATIENT
  Sex: Female

DRUGS (1)
  1. REBIF [Suspect]
     Indication: PRODUCT USED FOR UNKNOWN INDICATION
     Route: 058
     Dates: start: 20100615

REACTIONS (5)
  - CONVULSION [None]
  - WEIGHT DECREASED [None]
  - CHILLS [None]
  - INJECTION SITE ERYTHEMA [None]
  - CONSTIPATION [None]
